FAERS Safety Report 5753388-3 (Version None)
Quarter: 2008Q2

REPORT INFORMATION
  Report Type: 
  Country: None (occurrence: None)
  Receive Date: 20080527
  Receipt Date: 20080513
  Transmission Date: 20081010
  Serious: Yes (Hospitalization, Disabling)
  Sender: FDA-Public Use
  Company Number: TCI2007A05811

PATIENT
  Age: 47 Year
  Sex: Female

DRUGS (4)
  1. ACTOS [Suspect]
     Indication: DIABETES MELLITUS
     Dosage: 15 MG (15 MG,1 IN 1 D) PER ORAL; 30 MG (30 MG,1 IN 1 D)
     Route: 048
     Dates: start: 20070419, end: 20070508
  2. ACTOS [Suspect]
     Indication: DIABETES MELLITUS
     Dosage: 15 MG (15 MG,1 IN 1 D) PER ORAL; 30 MG (30 MG,1 IN 1 D)
     Route: 048
     Dates: start: 20070510, end: 20070830
  3. ACTOS [Suspect]
     Indication: DIABETES MELLITUS
     Dosage: 15 MG (15 MG,1 IN 1 D) PER ORAL; 30 MG (30 MG,1 IN 1 D)
     Route: 048
     Dates: start: 20070831
  4. SHIKICHOL (URSODEOXYCHOLIC ACID) [Concomitant]

REACTIONS (3)
  - HYPOAESTHESIA [None]
  - MYOPIA [None]
  - RETINAL DETACHMENT [None]
